FAERS Safety Report 9371971 (Version 6)
Quarter: 2013Q4

REPORT INFORMATION
  Report Type: Spontaneous
  Country: GB (occurrence: None)
  Receive Date: 20130617
  Receipt Date: 20131010
  Transmission Date: 20140711
  Serious: Yes (Other)
  Sender: FDA-Public Use
  Company Number: 2013036498

PATIENT
  Age: 43 Year
  Sex: Female

DRUGS (3)
  1. HIZENTRA [Suspect]
     Indication: IMMUNODEFICIENCY COMMON VARIABLE
     Dosage: INFUSION OF 40 ML IN THE RIGHT THIGH
     Route: 058
     Dates: start: 20130519
  2. SALBUTAMOL (SALBUTAMOL) [Concomitant]
  3. FLIXOTIDE (FLUTICASONE PROPIONATE) [Concomitant]

REACTIONS (10)
  - Skin ulcer [None]
  - Product closure issue [None]
  - Infusion site ulcer [None]
  - Infusion site erythema [None]
  - Infusion site vesicles [None]
  - Product quality issue [None]
  - Skin irritation [None]
  - Infusion site scab [None]
  - Procedural complication [None]
  - Skin ulcer [None]
